FAERS Safety Report 7029592-3 (Version None)
Quarter: 2010Q4

REPORT INFORMATION
  Report Type: 
  Country: None (occurrence: None)
  Receive Date: 20101005
  Receipt Date: 20100929
  Transmission Date: 20110411
  Serious: Yes (Other)
  Sender: FDA-Public Use
  Company Number: MY-MERCK-1009MYS00003

PATIENT
  Age: 82 Year
  Sex: Female

DRUGS (2)
  1. ALENDRONATE SODIUM AND CHOLECALCIFEROL [Suspect]
     Route: 048
     Dates: start: 20100101, end: 20100901
  2. HYDROCHLOROTHIAZIDE AND IRBESARTAN [Concomitant]
     Indication: HYPERTENSION
     Route: 048
     Dates: start: 20070101

REACTIONS (1)
  - RENAL IMPAIRMENT [None]
